FAERS Safety Report 20479829 (Version 1)
Quarter: 2022Q1

REPORT INFORMATION
  Report Type: Spontaneous
  Country: US (occurrence: None)
  Receive Date: 20220215
  Receipt Date: 20220215
  Transmission Date: 20220423
  Serious: Yes (Death)
  Sender: FDA-Public Use
  Company Number: None

PATIENT
  Age: 69 Year
  Sex: Female
  Weight: 70.1 kg

DRUGS (4)
  1. PEMBROLIZUMAB [Suspect]
     Active Substance: PEMBROLIZUMAB
     Indication: Non-small cell lung cancer
     Dosage: OTHER FREQUENCY : EVERY 3 WEEKS;?
     Route: 042
  2. PEMETREXED [Suspect]
     Active Substance: PEMETREXED
     Indication: Non-small cell lung cancer
     Dosage: OTHER FREQUENCY : EVERY 3 WEEKS;?
     Route: 042
  3. pembrolizumab 200mg IV q21d [Concomitant]
     Dates: start: 20210507
  4. pemetrexed 875mg IV q21d [Concomitant]
     Dates: start: 20210507

REACTIONS (3)
  - Immune-mediated lung disease [None]
  - Respiratory failure [None]
  - Acute kidney injury [None]

NARRATIVE: CASE EVENT DATE: 20220204
